FAERS Safety Report 14257974 (Version 1)
Quarter: 2017Q4

REPORT INFORMATION
  Report Type: Spontaneous
  Country: US (occurrence: None)
  Receive Date: 20171206
  Receipt Date: 20171206
  Transmission Date: 20180321
  Serious: No
  Sender: FDA-Public Use
  Company Number: None

PATIENT
  Age: 67 Year
  Sex: Male

DRUGS (1)
  1. HARVONI [Suspect]
     Active Substance: LEDIPASVIR\SOFOSBUVIR

REACTIONS (5)
  - Constipation [None]
  - Nausea [None]
  - Abdominal pain upper [None]
  - Faeces discoloured [None]
  - Abdominal discomfort [None]

NARRATIVE: CASE EVENT DATE: 20171122
